FAERS Safety Report 6572002-0 (Version None)
Quarter: 2010Q1

REPORT INFORMATION
  Report Type: 
  Country: None (occurrence: None)
  Receive Date: 20100201
  Receipt Date: 20100126
  Transmission Date: 20100710
  Serious: Yes (Hospitalization, Other)
  Sender: FDA-Public Use
  Company Number: SPV1-2010-00153

PATIENT
  Age: 58 Year
  Sex: Male

DRUGS (1)
  1. FOSRENOL [Suspect]
     Indication: HYPERPHOSPHATAEMIA
     Dosage: 4000 MG, 1000MG WITH BREAKFAST, 2000MG WITH LUNCH, 1000MG WITH DINNER, ORAL
     Dates: start: 20091101

REACTIONS (3)
  - INTESTINAL PERFORATION [None]
  - KNEE OPERATION [None]
  - SPINAL OPERATION [None]
